FAERS Safety Report 22650365 (Version 1)
Quarter: 2023Q2

REPORT INFORMATION
  Report Type: Spontaneous
  Country: US (occurrence: US)
  Receive Date: 20230628
  Receipt Date: 20230628
  Transmission Date: 20230722
  Serious: No
  Sender: FDA-Public Use
  Company Number: US-MAYNE PHARMA-2022TMD01105

PATIENT
  Age: 60 Year
  Sex: Male
  Weight: 90.703 kg

DRUGS (1)
  1. IMVEXXY [Suspect]
     Active Substance: ESTRADIOL
     Dosage: UNK
     Route: 061

REACTIONS (4)
  - Oral discomfort [Not Recovered/Not Resolved]
  - Burn oral cavity [Not Recovered/Not Resolved]
  - Skin exfoliation [Not Recovered/Not Resolved]
  - Exposure via partner [Recovered/Resolved]

NARRATIVE: CASE EVENT DATE: 20221101
